FAERS Safety Report 8062952-0 (Version None)
Quarter: 2012Q1

REPORT INFORMATION
  Report Type: 
  Country: None (occurrence: None)
  Receive Date: 20120123
  Receipt Date: 20120123
  Transmission Date: 20120608
  Serious: Yes (Life-Threatening, Hospitalization)
  Sender: FDA-Public Use
  Company Number: None

PATIENT
  Age: 59 Year
  Sex: Female

DRUGS (1)
  1. LEVOFLOXACIN [Suspect]
     Indication: PNEUMONIA
     Dosage: 750 MG
     Route: 048
     Dates: start: 20120103, end: 20120104

REACTIONS (10)
  - TREMOR [None]
  - GAIT DISTURBANCE [None]
  - DYSSTASIA [None]
  - UNRESPONSIVE TO STIMULI [None]
  - RENAL FAILURE [None]
  - COGNITIVE DISORDER [None]
  - FATIGUE [None]
  - BEDRIDDEN [None]
  - DISTURBANCE IN ATTENTION [None]
  - DRUG INTERACTION [None]
